FAERS Safety Report 14798950 (Version 1)
Quarter: 2018Q2

REPORT INFORMATION
  Report Type: Spontaneous
  Country: US (occurrence: US)
  Receive Date: 20180424
  Receipt Date: 20180424
  Transmission Date: 20180711
  Serious: Yes (Death)
  Sender: FDA-Public Use
  Company Number: US-BAYER-2018-077130

PATIENT
  Sex: Female

DRUGS (2)
  1. CARTERS LIVER [Concomitant]
     Dosage: UNK
  2. BAYER ASPIRIN [Suspect]
     Active Substance: ASPIRIN
     Dosage: 2 DF, QD
     Route: 048

REACTIONS (2)
  - Death [Fatal]
  - Product use issue [Unknown]
